FAERS Safety Report 23720469 (Version 1)
Quarter: 2024Q2

REPORT INFORMATION
  Report Type: Spontaneous
  Country: US (occurrence: US)
  Receive Date: 20240408
  Receipt Date: 20240408
  Transmission Date: 20240716
  Serious: No
  Sender: FDA-Public Use
  Company Number: US-SA-SAC20240403000558

PATIENT

DRUGS (1)
  1. LARONIDASE [Suspect]
     Active Substance: LARONIDASE
     Indication: Mucopolysaccharidosis I
     Dosage: 31.9 UNK, QW
     Route: 042
     Dates: start: 20130916

REACTIONS (4)
  - Pain in extremity [Unknown]
  - Trigger finger [Unknown]
  - Gait disturbance [Unknown]
  - Medical device removal [Recovering/Resolving]

NARRATIVE: CASE EVENT DATE: 20240201
